FAERS Safety Report 8225838-4 (Version None)
Quarter: 2012Q1

REPORT INFORMATION
  Report Type: 
  Country: None (occurrence: None)
  Receive Date: 20120321
  Receipt Date: 20120313
  Transmission Date: 20120608
  Serious: Yes (Other)
  Sender: FDA-Public Use
  Company Number: CA-ROCHE-1048894

PATIENT
  Sex: Female
  Weight: 113.5 kg

DRUGS (13)
  1. PANTOPRAZOLE SODIUM [Concomitant]
  2. CALCIUM CARBONATE [Concomitant]
  3. NORTRIPTYLINE HCL [Concomitant]
  4. CLONAZEPAM [Concomitant]
  5. VITAMIN D [Concomitant]
  6. MABTHERA [Suspect]
     Indication: SJOGREN'S SYNDROME
  7. LYRICA [Concomitant]
  8. FOLIC ACID [Concomitant]
  9. MABTHERA [Suspect]
     Indication: RHEUMATOID ARTHRITIS
     Route: 042
     Dates: start: 20120309
  10. IMOVANE [Concomitant]
  11. PREDNISONE TAB [Concomitant]
  12. ATIVAN [Concomitant]
  13. LASIX [Concomitant]

REACTIONS (4)
  - BLOOD GLUCOSE DECREASED [None]
  - SKIN BURNING SENSATION [None]
  - PAIN OF SKIN [None]
  - FATIGUE [None]
